FAERS Safety Report 11823972 (Version 2)
Quarter: 2015Q4

REPORT INFORMATION
  Report Type: Spontaneous
  Country: US (occurrence: US)
  Receive Date: 20151210
  Receipt Date: 20151217
  Transmission Date: 20160305
  Serious: No
  Sender: FDA-Public Use
  Company Number: US-GLAXOSMITHKLINE-US2015GSK173900

PATIENT
  Sex: Female

DRUGS (1)
  1. TANZEUM [Suspect]
     Active Substance: ALBIGLUTIDE
     Indication: TYPE 2 DIABETES MELLITUS
     Dosage: 50 MG, WE
     Dates: start: 201510

REACTIONS (6)
  - Nausea [Unknown]
  - Device breakage [Unknown]
  - Vomiting [Unknown]
  - Accidental exposure to product [Unknown]
  - Device use error [Unknown]
  - Device leakage [Unknown]
